FAERS Safety Report 13573063 (Version 3)
Quarter: 2017Q2

REPORT INFORMATION
  Report Type: Spontaneous
  Country: SK (occurrence: SK)
  Receive Date: 20170523
  Receipt Date: 20170612
  Transmission Date: 20170830
  Serious: Yes (Death)
  Sender: FDA-Public Use
  Company Number: SK-FRESENIUS KABI-FK201704233

PATIENT
  Sex: Female
  Weight: 85 kg

DRUGS (6)
  1. CEFUROXIM FRESENIUS 1500 MG [Suspect]
     Active Substance: CEFUROXIME
     Indication: PREVENTIVE SURGERY
     Route: 042
     Dates: start: 20170509, end: 20170509
  2. FRAXIPARINE [Suspect]
     Active Substance: NADROPARIN CALCIUM
     Indication: PROPHYLAXIS
  3. SODIUM CHLORIDE. [Suspect]
     Active Substance: SODIUM CHLORIDE
     Indication: BILIARY COLIC
     Dates: start: 20170508, end: 20170508
  4. METAMIZOLE SODIUM [Suspect]
     Active Substance: METAMIZOLE SODIUM
     Indication: BILIARY COLIC
  5. MESOCAIN [Suspect]
     Active Substance: TRIMECAINE
     Indication: BILIARY COLIC
     Dates: start: 20170508, end: 20170508
  6. ANALGIN [Suspect]
     Active Substance: METAMIZOLE SODIUM
     Indication: BILIARY COLIC
     Dates: start: 20170508, end: 20170508

REACTIONS (8)
  - Blood pressure decreased [Fatal]
  - Anaphylactic reaction [Fatal]
  - Seizure [Fatal]
  - Dyspnoea [Fatal]
  - Chills [Fatal]
  - Loss of consciousness [Fatal]
  - Oxygen saturation decreased [Fatal]
  - Anaphylactic shock [Fatal]

NARRATIVE: CASE EVENT DATE: 20170509
